FAERS Safety Report 4306878-4 (Version None)
Quarter: 2004Q1

REPORT INFORMATION
  Report Type: 
  Country: None (occurrence: None)
  Receive Date: 20040226
  Receipt Date: 20040226
  Transmission Date: 20041129
  Serious: No
  Sender: FDA-Public Use
  Company Number: None

PATIENT
  Sex: Female
  Weight: 72 kg

DRUGS (6)
  1. TAXOTERE [Suspect]
     Indication: LUNG NEOPLASM MALIGNANT
     Dosage: 61.2 MG 1Q WK X 3 IV
     Route: 042
     Dates: start: 20040107
  2. GEMCITABINE [Suspect]
     Indication: LUNG NEOPLASM MALIGNANT
     Dosage: 1020 MG 1 Q WK X 3 IV
     Route: 042
     Dates: start: 20040107
  3. ATIVAN [Concomitant]
  4. NEXIUM [Concomitant]
  5. KEPPRA [Concomitant]
  6. HYDROCHLOROTHIAZIDE [Concomitant]

REACTIONS (1)
  - PULMONARY EMBOLISM [None]
